FAERS Safety Report 24631726 (Version 1)
Quarter: 2024Q4

REPORT INFORMATION
  Report Type: Report from Study
  Country: US (occurrence: US)
  Receive Date: 20241118
  Receipt Date: 20241118
  Transmission Date: 20250114
  Serious: Yes (Other)
  Sender: UCB
  Company Number: US-UCBSA-2024043554

PATIENT
  Sex: Female

DRUGS (1)
  1. MIDAZOLAM [Suspect]
     Active Substance: MIDAZOLAM
     Indication: Seizure
     Dosage: 5 MILLIGRAM, REPEAT AFTER 10MIN IF NEED
     Route: 045

REACTIONS (3)
  - Seizure [Unknown]
  - Hypersensitivity [Not Recovered/Not Resolved]
  - Eyelid disorder [Not Recovered/Not Resolved]
